FAERS Safety Report 12917790 (Version 1)
Quarter: 2016Q4

REPORT INFORMATION
  Report Type: Spontaneous
  Country: US (occurrence: US)
  Receive Date: 20161107
  Receipt Date: 20161107
  Transmission Date: 20170207
  Serious: No
  Sender: FDA-Public Use
  Company Number: US-PFIZER INC-2016512724

PATIENT
  Sex: Male

DRUGS (1)
  1. XELJANZ [Suspect]
     Active Substance: TOFACITINIB CITRATE
     Dosage: UNK

REACTIONS (11)
  - Swelling [Unknown]
  - Musculoskeletal stiffness [Unknown]
  - Myalgia [Unknown]
  - Sleep disorder [Unknown]
  - Rhinorrhoea [Unknown]
  - Anxiety [Unknown]
  - Disturbance in attention [Unknown]
  - Arthralgia [Unknown]
  - Fatigue [Unknown]
  - Crepitations [Unknown]
  - Asthenia [Unknown]
